FAERS Safety Report 11507110 (Version 1)
Quarter: 2015Q3

REPORT INFORMATION
  Report Type: Spontaneous
  Country: US (occurrence: None)
  Receive Date: 20150914
  Receipt Date: 20150914
  Transmission Date: 20151125
  Serious: No
  Sender: FDA-Public Use
  Company Number: None

PATIENT
  Age: 30 Year
  Sex: Female

DRUGS (1)
  1. OTEZLA [Suspect]
     Active Substance: APREMILAST
     Indication: PSORIASIS
     Route: 048

REACTIONS (5)
  - Rash pruritic [None]
  - Menstruation irregular [None]
  - Rash [None]
  - Rash generalised [None]
  - Drug eruption [None]

NARRATIVE: CASE EVENT DATE: 20150828
